FAERS Safety Report 7126805-4 (Version None)
Quarter: 2010Q4

REPORT INFORMATION
  Report Type: 
  Country: None (occurrence: None)
  Receive Date: 20101129
  Receipt Date: 20091124
  Transmission Date: 20110411
  Serious: No
  Sender: FDA-Public Use
  Company Number: US-PFIZER INC-2009302650

PATIENT
  Sex: Male
  Weight: 79.4 kg

DRUGS (3)
  1. VIAGRA [Suspect]
     Indication: ERECTILE DYSFUNCTION
     Dosage: 100 MG, UNK
     Route: 048
  2. EFFEXOR [Concomitant]
     Indication: DEPRESSION
     Dosage: 37.5 MG, 1X/DAY
     Route: 048
  3. PREVACID [Concomitant]
     Indication: GASTRIC DISORDER
     Dosage: 30 MG, 1X/DAY

REACTIONS (3)
  - MYALGIA [None]
  - PAIN [None]
  - PAIN IN EXTREMITY [None]
